FAERS Safety Report 6329936-1 (Version None)
Quarter: 2009Q3

REPORT INFORMATION
  Report Type: 
  Country: None (occurrence: None)
  Receive Date: 20090826
  Receipt Date: 20090820
  Transmission Date: 20100115
  Serious: Yes (Hospitalization, Other)
  Sender: FDA-Public Use
  Company Number: GB-MERCK-0908GBR00065

PATIENT
  Age: 72 Year
  Sex: Female

DRUGS (3)
  1. FOSAMAX [Suspect]
     Indication: FRACTURE
     Route: 048
     Dates: end: 20090803
  2. FOSAMAX [Suspect]
     Indication: OSTEOPOROSIS
     Route: 048
     Dates: end: 20090803
  3. CALCIUM CARBONATE AND CHOLECALCIFEROL [Concomitant]
     Indication: FRACTURE
     Route: 048

REACTIONS (1)
  - DRUG INEFFECTIVE [None]
